FAERS Safety Report 16001849 (Version 1)
Quarter: 2019Q1

REPORT INFORMATION
  Report Type: Spontaneous
  Country: FR (occurrence: FR)
  Receive Date: 20190225
  Receipt Date: 20190225
  Transmission Date: 20190418
  Serious: Yes (Hospitalization)
  Sender: FDA-Public Use
  Company Number: FR-PFIZER INC-2019074798

PATIENT
  Age: 7 Year
  Sex: Female

DRUGS (4)
  1. PIVALONE (TIXOCORTOL PIVALATE) [Suspect]
     Active Substance: TIXOCORTOL PIVALATE
     Indication: TONSILLITIS
     Dosage: UNK
     Route: 045
     Dates: start: 20180202, end: 20180209
  2. PARACETAMOL [Suspect]
     Active Substance: ACETAMINOPHEN
     Indication: TONSILLITIS
     Dosage: UNK
     Route: 048
     Dates: start: 20180202, end: 20180209
  3. IBUPROFEN. [Suspect]
     Active Substance: IBUPROFEN
     Indication: TONSILLITIS
     Dosage: UNK
     Route: 048
     Dates: start: 20180202, end: 20180209
  4. JOSACINE [JOSAMYCIN PROPIONATE] [Suspect]
     Active Substance: JOSAMYCIN PROPIONATE
     Indication: TONSILLITIS
     Dosage: UNK
     Route: 048
     Dates: start: 20180202, end: 20180209

REACTIONS (1)
  - Acute generalised exanthematous pustulosis [Recovered/Resolved]

NARRATIVE: CASE EVENT DATE: 20180210
